FAERS Safety Report 17089269 (Version 1)
Quarter: 2019Q4

REPORT INFORMATION
  Report Type: Spontaneous
  Country: IN (occurrence: IN)
  Receive Date: 20191128
  Receipt Date: 20191128
  Transmission Date: 20200122
  Serious: Yes (Other)
  Sender: FDA-Public Use
  Company Number: IN-BAUSCH-BL-2019-062315

PATIENT
  Age: 4 Year
  Sex: Female

DRUGS (1)
  1. DOXYCYCLINE. [Suspect]
     Active Substance: DOXYCYCLINE
     Indication: CONJUNCTIVITIS
     Route: 048
     Dates: start: 201710, end: 201712

REACTIONS (2)
  - Photosensitivity reaction [Recovering/Resolving]
  - Tooth discolouration [Recovering/Resolving]

NARRATIVE: CASE EVENT DATE: 201712
